FAERS Safety Report 18923821 (Version 2)
Quarter: 2021Q2

REPORT INFORMATION
  Report Type: Report from Study
  Country: US (occurrence: US)
  Receive Date: 20210222
  Receipt Date: 20210419
  Transmission Date: 20210717
  Serious: Yes (Death, Hospitalization)
  Sender: FDA-Public Use
  Company Number: US-EXELIXIS-XL18421037131

PATIENT

DRUGS (5)
  1. XL184 [Suspect]
     Active Substance: CABOZANTINIB
     Indication: HEPATOCELLULAR CARCINOMA
     Dosage: 40 MG, QD
     Route: 048
     Dates: start: 20201104, end: 20210128
  2. DURVALUMAB. [Suspect]
     Active Substance: DURVALUMAB
     Indication: METASTATIC GASTRIC CANCER
  3. XL184 [Suspect]
     Active Substance: CABOZANTINIB
     Indication: METASTATIC GASTRIC CANCER
  4. DURVALUMAB. [Suspect]
     Active Substance: DURVALUMAB
     Indication: HEPATOCELLULAR CARCINOMA
     Dosage: 1500 MG, Q4WEEKS
     Route: 042
     Dates: start: 20201104, end: 20210212
  5. TEMOVATE [Concomitant]
     Active Substance: CLOBETASOL PROPIONATE

REACTIONS (6)
  - Pancreatitis [Not Recovered/Not Resolved]
  - Presyncope [Unknown]
  - Dizziness [Unknown]
  - Hepatic necrosis [Unknown]
  - Mental status changes [Unknown]
  - Multiple organ dysfunction syndrome [Fatal]

NARRATIVE: CASE EVENT DATE: 20210126
